FAERS Safety Report 9130347 (Version 5)
Quarter: 2013Q2

REPORT INFORMATION
  Report Type: Spontaneous
  Country: US (occurrence: US)
  Receive Date: 20130228
  Receipt Date: 20130412
  Transmission Date: 20140414
  Serious: No
  Sender: FDA-Public Use
  Company Number: US-009507513-1302USA013028

PATIENT
  Sex: Female
  Weight: 136.5 kg

DRUGS (1)
  1. IMPLANON [Suspect]
     Indication: CONTRACEPTION
     Dosage: 68 FORM-STR
     Route: 059
     Dates: start: 20110805

REACTIONS (2)
  - Medical device complication [Unknown]
  - No adverse event [Unknown]
